FAERS Safety Report 8273458-8 (Version None)
Quarter: 2012Q2

REPORT INFORMATION
  Report Type: 
  Country: None (occurrence: None)
  Receive Date: 20120411
  Receipt Date: 20120330
  Transmission Date: 20120825
  Serious: Yes (Other)
  Sender: FDA-Public Use
  Company Number: US-JNJFOC-20120401144

PATIENT
  Sex: Female
  Weight: 74.84 kg

DRUGS (5)
  1. TYLENOL (CAPLET) [Suspect]
     Route: 048
  2. VOLTAREN [Concomitant]
     Indication: SWELLING
     Route: 048
     Dates: start: 20020101
  3. REMICADE [Suspect]
     Indication: RHEUMATOID ARTHRITIS
     Route: 042
  4. TYLENOL (CAPLET) [Suspect]
     Indication: PAIN
     Route: 048
  5. VOLTAREN [Concomitant]
     Indication: PAIN
     Route: 048
     Dates: start: 20020101

REACTIONS (2)
  - BONE PAIN [None]
  - PSORIASIS [None]
